FAERS Safety Report 7765259-1 (Version None)
Quarter: 2011Q3

REPORT INFORMATION
  Report Type: 
  Country: None (occurrence: None)
  Receive Date: 20110921
  Receipt Date: 20110913
  Transmission Date: 20111222
  Serious: Yes (Hospitalization)
  Sender: FDA-Public Use
  Company Number: JP-GLAXOSMITHKLINE-B0746387A

PATIENT
  Sex: Female

DRUGS (7)
  1. ZOLPIDEM [Concomitant]
     Indication: INSOMNIA
     Dosage: 10MG PER DAY
     Route: 048
     Dates: end: 20110309
  2. DANAZOL [Suspect]
     Indication: IDIOPATHIC THROMBOCYTOPENIC PURPURA
     Dosage: 200MG PER DAY
     Route: 048
     Dates: end: 20110309
  3. PROMACTA [Suspect]
     Dosage: 25MG PER DAY
     Route: 048
     Dates: start: 20110223, end: 20110309
  4. PROMACTA [Suspect]
     Indication: IDIOPATHIC THROMBOCYTOPENIC PURPURA
     Dosage: 12.5MG PER DAY
     Route: 048
     Dates: start: 20110128, end: 20110222
  5. PREDNISOLONE [Concomitant]
     Indication: IDIOPATHIC THROMBOCYTOPENIC PURPURA
     Dosage: 17.5MG PER DAY
     Route: 048
     Dates: end: 20110309
  6. NEO-MINOPHAGEN-C [Concomitant]
     Dosage: 60ML PER DAY
     Route: 042
     Dates: end: 20110309
  7. OMEPRAZOLE [Concomitant]
     Dosage: 20MG PER DAY
     Route: 048
     Dates: end: 20110309

REACTIONS (1)
  - LIVER DISORDER [None]
